FAERS Safety Report 12824501 (Version 2)
Quarter: 2016Q4

REPORT INFORMATION
  Report Type: Other
  Country: CA (occurrence: CA)
  Receive Date: 20161007
  Receipt Date: 20161111
  Transmission Date: 20170207
  Serious: Yes (Other)
  Sender: FDA-Public Use
  Company Number: CA-APOTEX-2016AP012706

PATIENT
  Age: 79 Year
  Sex: Male
  Weight: 89 kg

DRUGS (1)
  1. APO-ALFUZOSIN [Suspect]
     Active Substance: ALFUZOSIN HYDROCHLORIDE
     Indication: URINARY RETENTION
     Dosage: 10 MG, QD
     Route: 048

REACTIONS (4)
  - Urinary retention [Unknown]
  - Product substitution issue [Unknown]
  - Prostatic disorder [Unknown]
  - Drug ineffective [Unknown]
